FAERS Safety Report 5708746-X (Version None)
Quarter: 2008Q2

REPORT INFORMATION
  Report Type: 
  Country: None (occurrence: None)
  Receive Date: 20080417
  Receipt Date: 20080409
  Transmission Date: 20081010
  Serious: Yes (Other)
  Sender: FDA-Public Use
  Company Number: US-GENENTECH-259087

PATIENT
  Age: 57 Year
  Sex: Female

DRUGS (8)
  1. RITUXAN [Suspect]
     Indication: CHRONIC LYMPHOCYTIC LEUKAEMIA
     Dosage: 375 MG/M2, UNKNOWN
     Route: 042
     Dates: start: 20030129, end: 20030514
  2. PREDNISONE [Concomitant]
     Indication: APLASIA PURE RED CELL
     Dosage: 40 MG, QD
     Route: 048
     Dates: start: 20030129, end: 20040203
  3. CYCLOPHOSPHAMIDE [Concomitant]
     Indication: CHRONIC LYMPHOCYTIC LEUKAEMIA
     Dosage: 750 MG/M2, UNK
     Route: 042
     Dates: start: 20030129, end: 20030625
  4. VINCRISTINE [Concomitant]
     Indication: CHRONIC LYMPHOCYTIC LEUKAEMIA
     Dosage: 2 MG, UNK
     Route: 042
     Dates: start: 20030129, end: 20030625
  5. CORTICOSTEROID (UNK INGREDIENTS) [Concomitant]
     Indication: CHRONIC LYMPHOCYTIC LEUKAEMIA
     Dosage: UNK, QD
     Route: 048
     Dates: start: 20030129, end: 20040203
  6. CORTICOSTEROID (UNK INGREDIENTS) [Concomitant]
     Indication: APLASIA PURE RED CELL
  7. ATGAM [Concomitant]
     Indication: APLASIA PURE RED CELL
     Dosage: 40 MG/KG, X4
     Route: 042
     Dates: start: 20031222, end: 20031226
  8. CYCLOSPORINE [Concomitant]
     Indication: APLASIA PURE RED CELL
     Dosage: UNK, BID
     Route: 048
     Dates: start: 20030801, end: 20041217

REACTIONS (1)
  - PROGRESSIVE MULTIFOCAL LEUKOENCEPHALOPATHY [None]
